FAERS Safety Report 20657210 (Version 5)
Quarter: 2022Q4

REPORT INFORMATION
  Report Type: Other
  Country: CN (occurrence: None)
  Receive Date: 20220331
  Receipt Date: 20221201
  Transmission Date: 20230112
  Serious: Yes (Life-Threatening, Other)
  Sender: FDA-Public Use
  Company Number: CN-ROCHE-2264155

PATIENT
  Age: 58 Year
  Sex: Male
  Weight: 57 kg

DRUGS (2)
  1. BEVACIZUMAB [Suspect]
     Active Substance: BEVACIZUMAB
     Indication: Colorectal cancer metastatic
     Route: 041
     Dates: start: 20150505, end: 20210818
  2. BEVACIZUMAB [Suspect]
     Active Substance: BEVACIZUMAB
     Route: 041

REACTIONS (10)
  - Seizure [Unknown]
  - Cerebral haemorrhage [Recovering/Resolving]
  - Coma [Recovering/Resolving]
  - Drug intolerance [Unknown]
  - Cerebral disorder [Recovering/Resolving]
  - Hemiplegia [Unknown]
  - Speech disorder [Recovering/Resolving]
  - Ill-defined disorder [Recovering/Resolving]
  - Ascites [Not Recovered/Not Resolved]
  - Discomfort [Unknown]

NARRATIVE: CASE EVENT DATE: 20210831
